FAERS Safety Report 11103469 (Version 1)
Quarter: 2015Q2

REPORT INFORMATION
  Report Type: Spontaneous
  Country: GB (occurrence: None)
  Receive Date: 20150507
  Receipt Date: 20150507
  Transmission Date: 20150821
  Serious: Yes (Death)
  Sender: FDA-Public Use
  Company Number: GB-DEXPHARM-20150306

PATIENT
  Age: 83 Year
  Sex: Male

DRUGS (11)
  1. CLARITHROMYCIN. [Suspect]
     Active Substance: CLARITHROMYCIN
     Indication: PNEUMONIA ASPIRATION
     Route: 042
     Dates: start: 20150201, end: 20150206
  2. DOXYCYCLINE. [Suspect]
     Active Substance: DOXYCYCLINE
     Indication: URINARY TRACT INFECTION
     Route: 048
     Dates: start: 20150201, end: 20150206
  3. MEROPENEM. [Suspect]
     Active Substance: MEROPENEM
     Indication: UROSEPSIS
     Route: 042
     Dates: start: 20150224, end: 20150303
  4. OFLOXACIN. [Suspect]
     Active Substance: OFLOXACIN
     Indication: EPIDIDYMITIS
     Route: 048
     Dates: start: 20150129, end: 20150212
  5. TAZOCIN [Suspect]
     Active Substance: PIPERACILLIN SODIUM\TAZOBACTAM SODIUM
     Indication: LOWER RESPIRATORY TRACT INFECTION
     Route: 042
     Dates: start: 20150122, end: 20150127
  6. VANCOMYCIN [Suspect]
     Active Substance: VANCOMYCIN
     Indication: PNEUMONIA ASPIRATION
     Route: 042
     Dates: start: 20150320, end: 20150325
  7. MEROPENEM. [Suspect]
     Active Substance: MEROPENEM
     Indication: LOWER RESPIRATORY TRACT INFECTION
     Route: 042
     Dates: start: 20150224, end: 20150303
  8. TAZOCIN [Suspect]
     Active Substance: PIPERACILLIN SODIUM\TAZOBACTAM SODIUM
     Indication: PNEUMONIA ASPIRATION
     Route: 042
     Dates: start: 20150122, end: 20150127
  9. MEROPENEM. [Suspect]
     Active Substance: MEROPENEM
     Indication: URINARY TRACT INFECTION
     Route: 042
     Dates: start: 20150224, end: 20150303
  10. OMEPRAZOLE. [Suspect]
     Active Substance: OMEPRAZOLE
     Route: 048
     Dates: start: 20150317, end: 20150325
  11. LANSOPRAZOLE. [Suspect]
     Active Substance: LANSOPRAZOLE
     Route: 048
     Dates: start: 20150122, end: 20150226

REACTIONS (2)
  - Clostridium difficile infection [None]
  - Drug ineffective [None]

NARRATIVE: CASE EVENT DATE: 20150316
